FAERS Safety Report 5761177-9 (Version None)
Quarter: 2008Q2

REPORT INFORMATION
  Report Type: 
  Country: None (occurrence: None)
  Receive Date: 20080606
  Receipt Date: 20080527
  Transmission Date: 20081010
  Serious: Yes (Hospitalization)
  Sender: FDA-Public Use
  Company Number: B0522806A

PATIENT
  Age: 60 Year
  Sex: Male
  Weight: 65 kg

DRUGS (14)
  1. ZOPHREN [Suspect]
     Indication: DRUG USE FOR UNKNOWN INDICATION
     Dosage: 8MG PER DAY
     Route: 042
     Dates: start: 20080204, end: 20080206
  2. CISPLATIN [Suspect]
     Indication: CHEMOTHERAPY
     Dosage: 175MG SINGLE DOSE
     Route: 042
     Dates: start: 20080205, end: 20080205
  3. FLUOROURACIL [Suspect]
     Indication: CHEMOTHERAPY
     Dosage: 1750MG PER DAY
     Route: 042
     Dates: start: 20080204, end: 20080206
  4. PRIMPERAN TAB [Suspect]
     Indication: DRUG USE FOR UNKNOWN INDICATION
     Dosage: 10MG PER DAY
     Route: 042
     Dates: start: 20080204, end: 20080206
  5. SOLU-MEDROL [Suspect]
     Indication: DRUG USE FOR UNKNOWN INDICATION
     Route: 042
     Dates: start: 20080205, end: 20080205
  6. LASILIX [Suspect]
     Indication: DRUG USE FOR UNKNOWN INDICATION
     Dosage: 20MG PER DAY
     Route: 065
     Dates: start: 20080205, end: 20080206
  7. CIPROFLOXACIN HCL [Concomitant]
     Route: 048
     Dates: start: 20080210
  8. TRIATEC [Concomitant]
     Route: 048
     Dates: start: 20000101, end: 20080207
  9. LANTUS [Concomitant]
  10. REPAGLINIDE [Concomitant]
  11. ZEFFIX [Concomitant]
  12. CARDENSIEL [Concomitant]
  13. XATRAL [Concomitant]
  14. DEXTROSE 5% [Concomitant]
     Route: 042

REACTIONS (5)
  - BLADDER DISTENSION [None]
  - BLOOD CREATININE INCREASED [None]
  - BLOOD UREA INCREASED [None]
  - DYSURIA [None]
  - RENAL FAILURE ACUTE [None]
